FAERS Safety Report 25839594 (Version 2)
Quarter: 2025Q4

REPORT INFORMATION
  Report Type: Report from Study
  Country: GB (occurrence: GB)
  Receive Date: 20250924
  Receipt Date: 20251031
  Transmission Date: 20260118
  Serious: Yes (Disabling, Other)
  Sender: CELLTRION
  Company Number: GB-CELLTRION INC.-2025GB033384

PATIENT

DRUGS (2)
  1. ADALIMUMAB-AATY [Suspect]
     Active Substance: ADALIMUMAB-AATY
     Indication: Axial spondyloarthritis
     Dosage: 40 MG, EVERY 2 WEEKS
     Route: 058
     Dates: start: 202501, end: 202509
  2. ADALIMUMAB-AATY [Suspect]
     Active Substance: ADALIMUMAB-AATY

REACTIONS (7)
  - Neuralgia [Unknown]
  - Nervous system disorder [Unknown]
  - Migraine [Unknown]
  - Infection susceptibility increased [Unknown]
  - Eye infection [Unknown]
  - Tooth infection [Unknown]
  - Intentional dose omission [Unknown]
